FAERS Safety Report 8393485-X (Version None)
Quarter: 2012Q2

REPORT INFORMATION
  Report Type: 
  Country: None (occurrence: None)
  Receive Date: 20120529
  Receipt Date: 20120522
  Transmission Date: 20120825
  Serious: Yes (Hospitalization)
  Sender: FDA-Public Use
  Company Number: ES-ELI_LILLY_AND_COMPANY-ES201205008278

PATIENT
  Age: 46 Year
  Sex: Female

DRUGS (2)
  1. BYETTA [Suspect]
     Indication: DIABETES MELLITUS
     Dosage: 5 UG, BID
     Route: 058
     Dates: start: 20110714, end: 20110912
  2. BYETTA [Suspect]
     Dosage: 10 UG, BID
     Route: 058
     Dates: start: 20110913, end: 20120302

REACTIONS (7)
  - METABOLIC ACIDOSIS [None]
  - PANCREATITIS [None]
  - ANAEMIA [None]
  - BLOOD INSULIN DECREASED [None]
  - MALNUTRITION [None]
  - HYPERGLYCAEMIA [None]
  - PANCREATIC INSUFFICIENCY [None]
